FAERS Safety Report 8264508-3 (Version None)
Quarter: 2012Q2

REPORT INFORMATION
  Report Type: 
  Country: None (occurrence: None)
  Receive Date: 20120406
  Receipt Date: 20120326
  Transmission Date: 20120825
  Serious: Yes (Hospitalization)
  Sender: FDA-Public Use
  Company Number: US-CELGENEUS-163-21880-12030737

PATIENT
  Sex: Male

DRUGS (12)
  1. REVLIMID [Suspect]
     Indication: MULTIPLE MYELOMA
     Dosage: 25 MILLIGRAM
     Route: 048
     Dates: start: 20120122, end: 20120127
  2. PROCRIT [Concomitant]
     Dosage: 40000 UNITS
     Route: 065
     Dates: start: 20120206
  3. LIPITOR [Concomitant]
     Dosage: 20 MILLIGRAM
     Route: 048
  4. PLAVIX [Concomitant]
     Dosage: 75 MILLIGRAM
     Route: 065
  5. DECADRON [Concomitant]
     Indication: MULTIPLE MYELOMA
     Dosage: 40 MILLIGRAM
     Route: 048
     Dates: start: 20120122
  6. ASPIRIN [Concomitant]
  7. COREG [Concomitant]
     Dosage: 3.125 MILLIGRAM
     Route: 048
     Dates: end: 20120224
  8. REVLIMID [Suspect]
     Dosage: 25 MILLIGRAM
     Route: 048
     Dates: start: 20120127
  9. ASPIRIN [Concomitant]
     Indication: CORONARY ARTERY DISEASE
     Dosage: 81 MILLIGRAM
     Route: 048
  10. GLYBURIDE [Concomitant]
     Indication: DIABETES MELLITUS
     Dosage: 2.5 MILLIGRAM
     Route: 048
  11. FLOMAX [Concomitant]
     Dosage: .4 MILLIGRAM
     Route: 065
  12. SODIUM CHLORIDE [Concomitant]
     Dosage: 500CC
     Route: 065

REACTIONS (5)
  - HAEMOGLOBIN DECREASED [None]
  - RENAL FAILURE CHRONIC [None]
  - HAEMODYNAMIC INSTABILITY [None]
  - HYPOTENSION [None]
  - HYPERKALAEMIA [None]
